FAERS Safety Report 7276760-1 (Version None)
Quarter: 2011Q1

REPORT INFORMATION
  Report Type: 
  Country: None (occurrence: None)
  Receive Date: 20110206
  Receipt Date: 20110127
  Transmission Date: 20110831
  Serious: Yes (Other)
  Sender: FDA-Public Use
  Company Number: JP-BAYER-2011-008941

PATIENT
  Age: 41 Year
  Sex: Female

DRUGS (1)
  1. ASPIRIN [Suspect]
     Route: 048

REACTIONS (1)
  - AGRANULOCYTOSIS [None]
